FAERS Safety Report 5092759-8 (Version None)
Quarter: 2006Q3

REPORT INFORMATION
  Report Type: 
  Country: None (occurrence: None)
  Receive Date: 20060830
  Receipt Date: 20060821
  Transmission Date: 20061208
  Serious: Yes (Death, Other)
  Sender: FDA-Public Use
  Company Number: HK-BRISTOL-MYERS SQUIBB COMPANY-13483110

PATIENT
  Age: 27 Year
  Sex: Female

DRUGS (6)
  1. BLEOMYCIN SULFATE [Suspect]
     Indication: GESTATIONAL TROPHOBLASTIC TUMOUR
     Route: 042
  2. METHOTREXATE [Suspect]
     Indication: GESTATIONAL TROPHOBLASTIC TUMOUR
     Route: 042
  3. METHOTREXATE [Suspect]
     Route: 048
  4. ETOPOSIDE [Suspect]
     Indication: GESTATIONAL TROPHOBLASTIC TUMOUR
  5. FOLIC ACID [Concomitant]
     Route: 042
  6. FOLIC ACID [Concomitant]
     Route: 048

REACTIONS (3)
  - PANCYTOPENIA [None]
  - PULMONARY EMBOLISM [None]
  - SEPSIS [None]
